FAERS Safety Report 15239718 (Version 1)
Quarter: 2018Q3

REPORT INFORMATION
  Report Type: Spontaneous
  Country: US (occurrence: US)
  Receive Date: 20180803
  Receipt Date: 20180803
  Transmission Date: 20181010
  Serious: No
  Sender: FDA-Public Use
  Company Number: US-SUNOVION-2018SUN002927

PATIENT
  Age: 75 Year
  Sex: Female
  Weight: 56.24 kg

DRUGS (2)
  1. SEEBRI [Suspect]
     Active Substance: GLYCOPYRRONIUM
     Indication: CHRONIC OBSTRUCTIVE PULMONARY DISEASE
  2. SEEBRI [Suspect]
     Active Substance: GLYCOPYRRONIUM
     Indication: EMPHYSEMA
     Dosage: UNK
     Route: 055
     Dates: start: 2018

REACTIONS (1)
  - Eye pruritus [Not Recovered/Not Resolved]

NARRATIVE: CASE EVENT DATE: 2018
